FAERS Safety Report 8368856-8 (Version None)
Quarter: 2012Q2

REPORT INFORMATION
  Report Type: 
  Country: None (occurrence: None)
  Receive Date: 20120516
  Receipt Date: 20120430
  Transmission Date: 20120825
  Serious: Yes (Hospitalization)
  Sender: FDA-Public Use
  Company Number: JPI-P-021022

PATIENT
  Age: 34 Year
  Sex: Female

DRUGS (4)
  1. XYREM [Suspect]
     Indication: SOMNOLENCE
     Dosage: 6 GM (3 GM , 2 IN 1 D), ORAL 7.5 GM (3.75 GM, 2 IN 1 D), ORAL
     Route: 048
     Dates: start: 20120214
  2. XYREM [Suspect]
     Indication: CATAPLEXY
     Dosage: 6 GM (3 GM , 2 IN 1 D), ORAL 7.5 GM (3.75 GM, 2 IN 1 D), ORAL
     Route: 048
     Dates: start: 20120214
  3. XYREM [Suspect]
     Indication: SOMNOLENCE
     Dosage: 6 GM (3 GM , 2 IN 1 D), ORAL 7.5 GM (3.75 GM, 2 IN 1 D), ORAL
     Route: 048
     Dates: start: 20111111
  4. XYREM [Suspect]
     Indication: CATAPLEXY
     Dosage: 6 GM (3 GM , 2 IN 1 D), ORAL 7.5 GM (3.75 GM, 2 IN 1 D), ORAL
     Route: 048
     Dates: start: 20111111

REACTIONS (10)
  - CATAPLEXY [None]
  - AMMONIA INCREASED [None]
  - INSOMNIA [None]
  - FALL [None]
  - FACE INJURY [None]
  - CONVULSION [None]
  - VIRAL INFECTION [None]
  - DEHYDRATION [None]
  - CONTUSION [None]
  - SOMNAMBULISM [None]
